FAERS Safety Report 21102195 (Version 2)
Quarter: 2022Q3

REPORT INFORMATION
  Report Type: Report from Study
  Country: MX (occurrence: MX)
  Receive Date: 20220719
  Receipt Date: 20220826
  Transmission Date: 20221027
  Serious: Yes (Hospitalization)
  Sender: FDA-Public Use
  Company Number: MX-NOVARTISPH-NVSC2022MX163255

PATIENT
  Age: 58 Year
  Sex: Female
  Weight: 68 kg

DRUGS (1)
  1. FEMARA [Suspect]
     Active Substance: LETROZOLE
     Indication: Hormone suppression therapy
     Dosage: 2.5 MG, QD (PILL)
     Route: 048
     Dates: start: 20220401

REACTIONS (5)
  - Urinary tract infection [Recovered/Resolved]
  - Weight increased [Not Recovered/Not Resolved]
  - Mobility decreased [Recovering/Resolving]
  - Decreased immune responsiveness [Unknown]
  - Product use in unapproved indication [Unknown]

NARRATIVE: CASE EVENT DATE: 20220401
